FAERS Safety Report 4938234-X (Version None)
Quarter: 2006Q1

REPORT INFORMATION
  Report Type: 
  Country: None (occurrence: None)
  Receive Date: 20060309
  Receipt Date: 20050606
  Transmission Date: 20060701
  Serious: Yes (Hospitalization)
  Sender: FDA-Public Use
  Company Number: FR-ROCHE-406734

PATIENT
  Age: 40 Year
  Sex: Female

DRUGS (4)
  1. PEG-INTERFERON ALFA 2A (RO 25-8310) [Suspect]
     Route: 058
     Dates: start: 20041223, end: 20050505
  2. PEG-INTERFERON ALFA 2A (RO 25-8310) [Suspect]
     Route: 058
     Dates: start: 20050506, end: 20050512
  3. PEG-INTERFERON ALFA 2A (RO 25-8310) [Suspect]
     Route: 058
     Dates: start: 20050513, end: 20051112
  4. RIBAVIRIN [Suspect]
     Route: 048
     Dates: start: 20041223, end: 20051123

REACTIONS (5)
  - ANOREXIA [None]
  - ANXIETY [None]
  - ASTHENIA [None]
  - CONSTIPATION [None]
  - IRRITABILITY [None]
